FAERS Safety Report 24341918 (Version 2)
Quarter: 2024Q4

REPORT INFORMATION
  Report Type: Spontaneous
  Country: CL (occurrence: CL)
  Receive Date: 20240920
  Receipt Date: 20241105
  Transmission Date: 20250115
  Serious: Yes (Other)
  Sender: NOVO NORDISK
  Company Number: CL-NOVOPROD-1277647

PATIENT
  Age: 46 Year
  Sex: Female
  Weight: 55 kg

DRUGS (3)
  1. NOVORAPID [Suspect]
     Active Substance: INSULIN ASPART
     Indication: Diabetes mellitus
     Dosage: UNK (STARTED 3 OR 4 YEARS AGO; DOSAGE; ACCORDING TO GLYCEMIA)
     Route: 058
  2. TRESIBA [Concomitant]
     Active Substance: INSULIN DEGLUDEC
     Indication: Product used for unknown indication
     Dosage: 12 IU, QD
     Dates: start: 2014
  3. LEVOTHYROXINE SODIUM [Concomitant]
     Active Substance: LEVOTHYROXINE SODIUM
     Indication: Product used for unknown indication
     Dosage: MONDAY TO FRIDAY: 100 MG; ON WEEKEND: 88 MG.
     Dates: start: 1993

REACTIONS (8)
  - Diabetic metabolic decompensation [Not Recovered/Not Resolved]
  - Device failure [Unknown]
  - Hyperglycaemia [Recovered/Resolved]
  - Device delivery system issue [Unknown]
  - Wrong technique in product usage process [Unknown]
  - Multiple use of single-use product [Unknown]
  - Product communication issue [Unknown]
  - Product storage error [Unknown]

NARRATIVE: CASE EVENT DATE: 20240801
